FAERS Safety Report 6132039-2 (Version None)
Quarter: 2009Q1

REPORT INFORMATION
  Report Type: 
  Country: None (occurrence: None)
  Receive Date: 20090325
  Receipt Date: 20090312
  Transmission Date: 20090719
  Serious: Yes (Death)
  Sender: FDA-Public Use
  Company Number: JP-PFIZER INC-2009183507

PATIENT

DRUGS (2)
  1. LINEZOLID [Suspect]
     Indication: PNEUMONIA
     Dosage: 600 MG, 2X/DAY
     Route: 042
     Dates: start: 20080515, end: 20080515
  2. TAKEPRON [Concomitant]
     Dates: start: 20080423, end: 20080515

REACTIONS (1)
  - DEATH [None]
